FAERS Safety Report 25764573 (Version 1)
Quarter: 2025Q3

REPORT INFORMATION
  Report Type: Spontaneous
  Country: US (occurrence: US)
  Receive Date: 20250905
  Receipt Date: 20250905
  Transmission Date: 20251021
  Serious: No
  Sender: DOMPE FARMACEUTICI
  Company Number: US-FARMAPROD-202501-0171

PATIENT
  Age: 78 Year
  Sex: Female

DRUGS (16)
  1. OXERVATE [Suspect]
     Active Substance: CENEGERMIN-BKBJ
     Indication: Neurotrophic keratopathy
     Route: 047
     Dates: start: 20250109
  2. OXERVATE [Suspect]
     Active Substance: CENEGERMIN-BKBJ
  3. LATANOPROST [Concomitant]
     Active Substance: LATANOPROST
  4. CRANBERRY [Concomitant]
     Active Substance: CRANBERRY
  5. FAMOTIDINE [Concomitant]
     Active Substance: FAMOTIDINE
  6. ZOLPIDEM TARTRATE [Concomitant]
     Active Substance: ZOLPIDEM TARTRATE
  7. OMEPRAZOLE [Concomitant]
     Active Substance: OMEPRAZOLE
  8. PIOGLITAZONE HYDROCHLORIDE [Concomitant]
     Active Substance: PIOGLITAZONE HYDROCHLORIDE
  9. ASPIRIN [Concomitant]
     Active Substance: ASPIRIN
  10. ROSUVASTATIN CALCIUM [Concomitant]
     Active Substance: ROSUVASTATIN CALCIUM
  11. LOSARTAN- ?HYDROCHLOROTHIAZIDE [Concomitant]
  12. METOPROLOL SUCCINATE [Concomitant]
     Active Substance: METOPROLOL SUCCINATE
  13. TIMOLOL [Concomitant]
     Active Substance: TIMOLOL
  14. POTASSIUM 595 [Concomitant]
  15. MINERALS\VITAMINS [Concomitant]
     Active Substance: MINERALS\VITAMINS
  16. LIALDA [Concomitant]
     Active Substance: MESALAMINE

REACTIONS (4)
  - Eye pain [Not Recovered/Not Resolved]
  - Lacrimation increased [Unknown]
  - Product dose omission issue [Unknown]
  - Eye ulcer [Unknown]

NARRATIVE: CASE EVENT DATE: 20250114
